FAERS Safety Report 25296131 (Version 2)
Quarter: 2025Q3

REPORT INFORMATION
  Report Type: Spontaneous
  Country: US (occurrence: US)
  Receive Date: 20250511
  Receipt Date: 20250930
  Transmission Date: 20251021
  Serious: No
  Sender: SANOFI AVENTIS
  Company Number: US-SA-2025SA132907

PATIENT
  Age: 60 Year
  Sex: Female

DRUGS (3)
  1. DUPIXENT [Suspect]
     Active Substance: DUPILUMAB
     Indication: Eczema
     Dosage: 300 MG, QOW
     Route: 058
     Dates: start: 2024
  2. DUPIXENT [Suspect]
     Active Substance: DUPILUMAB
     Route: 058
     Dates: start: 202503
  3. DUPIXENT [Suspect]
     Active Substance: DUPILUMAB
     Dosage: 300 MG, QOW
     Route: 058
     Dates: start: 2025

REACTIONS (7)
  - Rebound eczema [Recovering/Resolving]
  - Eczema [Unknown]
  - Rash [Unknown]
  - Blister [Unknown]
  - Cellulitis [Unknown]
  - Erythema [Unknown]
  - Dry skin [Unknown]

NARRATIVE: CASE EVENT DATE: 20250101
